FAERS Safety Report 21993912 (Version 2)
Quarter: 2023Q2

REPORT INFORMATION
  Report Type: Spontaneous
  Country: US (occurrence: US)
  Receive Date: 20230215
  Receipt Date: 20230420
  Transmission Date: 20230721
  Serious: Yes (Other)
  Sender: FDA-Public Use
  Company Number: US-drreddys-SPO/USA/23/0161060

PATIENT
  Age: 56 Year
  Sex: Female

DRUGS (1)
  1. DOXORUBICIN HYDROCHLORIDE [Suspect]
     Active Substance: DOXORUBICIN HYDROCHLORIDE
     Indication: Ovarian cancer

REACTIONS (2)
  - Hereditary alpha tryptasaemia [Unknown]
  - Condition aggravated [Unknown]
